FAERS Safety Report 9411877 (Version 2)
Quarter: 2013Q2

REPORT INFORMATION
  Report Type: Spontaneous
  Country: BR (occurrence: BR)
  Receive Date: 20130422
  Receipt Date: 20130423
  Transmission Date: 20140414
  Serious: Yes (Other)
  Sender: FDA-Public Use
  Company Number: CTI_01566_2013

PATIENT
  Age: 36 Year
  Sex: Female

DRUGS (3)
  1. FACTIVE [Suspect]
     Indication: SINUSITIS
     Dates: start: 20130314, end: 20130320
  2. ALLESTRA [Suspect]
     Indication: ORAL CONTRACEPTION
     Dates: start: 2010
  3. RIVOTRIL (CLONAZEPAM) [Concomitant]

REACTIONS (7)
  - Drug hypersensitivity [None]
  - Angioedema [None]
  - Sinusitis [None]
  - Drug interaction [None]
  - Wrong drug administered [None]
  - Nasopharyngitis [None]
  - Drug ineffective [None]
